FAERS Safety Report 25357707 (Version 2)
Quarter: 2025Q3

REPORT INFORMATION
  Report Type: Report from Study
  Country: US (occurrence: US)
  Receive Date: 20250526
  Receipt Date: 20250803
  Transmission Date: 20251021
  Serious: Yes (Other)
  Sender: ALEXION PHARMACEUTICALS
  Company Number: US-AstraZeneca-CH-00875271A

PATIENT
  Sex: Female

DRUGS (1)
  1. OSIMERTINIB [Suspect]
     Active Substance: OSIMERTINIB
     Indication: Lung carcinoma cell type unspecified stage 0
     Dosage: 80 MILLIGRAM, QD

REACTIONS (9)
  - Thrombosis [Recovered/Resolved]
  - Hypotension [Unknown]
  - Dyspnoea [Unknown]
  - Chest pain [Unknown]
  - Cough [Unknown]
  - Decreased appetite [Unknown]
  - Abdominal pain [Unknown]
  - Diarrhoea [Unknown]
  - Therapy interrupted [Unknown]
